FAERS Safety Report 24650454 (Version 1)
Quarter: 2024Q4

REPORT INFORMATION
  Report Type: Other
  Country: CA (occurrence: CA)
  Receive Date: 20241122
  Receipt Date: 20241122
  Transmission Date: 20250115
  Serious: Yes (Other)
  Sender: APOTEX
  Company Number: CA-APOTEX-2024AP017653

PATIENT
  Age: 76 Year
  Sex: Female
  Weight: 72 kg

DRUGS (4)
  1. IMATINIB [Suspect]
     Active Substance: IMATINIB
     Indication: Philadelphia chromosome positive
     Dosage: 400 MILLIGRAM, QD
     Route: 048
  2. IMATINIB [Suspect]
     Active Substance: IMATINIB
     Indication: Lymphocytic leukaemia
  3. IMATINIB [Suspect]
     Active Substance: IMATINIB
     Indication: Philadelphia chromosome positive
     Dosage: 400 MILLIGRAM, QD
     Route: 048
  4. IMATINIB [Suspect]
     Active Substance: IMATINIB
     Indication: Lymphocytic leukaemia

REACTIONS (2)
  - Similar reaction on previous exposure to drug [Recovered/Resolved]
  - Skin infection [Recovered/Resolved]
